FAERS Safety Report 11653948 (Version 3)
Quarter: 2016Q1

REPORT INFORMATION
  Report Type: Spontaneous
  Country: BR (occurrence: BR)
  Receive Date: 20151022
  Receipt Date: 20160219
  Transmission Date: 20160525
  Serious: Yes (Hospitalization, Other)
  Sender: FDA-Public Use
  Company Number: BR-009507513-1509BRA011915

PATIENT
  Age: 28 Year
  Sex: Female
  Weight: 65 kg

DRUGS (2)
  1. NUVARING [Suspect]
     Active Substance: ETHINYL ESTRADIOL\ETONOGESTREL
     Indication: DYSMENORRHOEA
  2. NUVARING [Suspect]
     Active Substance: ETHINYL ESTRADIOL\ETONOGESTREL
     Indication: CONTRACEPTION
     Dosage: 1 RING FOR 21 DAYS WITHOUT RING FREE INTERVAL
     Route: 067
     Dates: start: 2011, end: 201410

REACTIONS (13)
  - Caesarean section [Recovered/Resolved]
  - Placental disorder [Recovered/Resolved]
  - Unintended pregnancy [Recovered/Resolved]
  - Incorrect drug administration duration [Unknown]
  - Blood pressure decreased [Recovered/Resolved]
  - Abnormal withdrawal bleeding [Recovered/Resolved]
  - Placental disorder [Recovered/Resolved]
  - Off label use [Unknown]
  - Incorrect drug administration duration [Unknown]
  - Amniotic fluid volume decreased [Recovered/Resolved]
  - Blood pressure decreased [Recovered/Resolved]
  - Metrorrhagia [Recovered/Resolved]
  - Pregnancy with contraceptive device [Recovered/Resolved]

NARRATIVE: CASE EVENT DATE: 2011
